FAERS Safety Report 9178205 (Version 1)
Quarter: 2013Q1

REPORT INFORMATION
  Report Type: Spontaneous
  Country: US (occurrence: US)
  Receive Date: 20130321
  Receipt Date: 20130321
  Transmission Date: 20140127
  Serious: Yes (Hospitalization)
  Sender: FDA-Public Use
  Company Number: US-ELI_LILLY_AND_COMPANY-US201303004194

PATIENT
  Sex: Male

DRUGS (6)
  1. FORTEO [Suspect]
     Dosage: 20 UG, QD
     Dates: start: 20130110, end: 20130311
  2. BABY ASPIRIN [Concomitant]
  3. CALCIUM [Concomitant]
  4. CENTRUM SILVER [Concomitant]
  5. VITAMIN D3 [Concomitant]
  6. IRON [Concomitant]

REACTIONS (5)
  - Vomiting [Unknown]
  - Dizziness [Unknown]
  - Gait disturbance [Unknown]
  - Injection site haemorrhage [Unknown]
  - Gait disturbance [Unknown]
